FAERS Safety Report 19938035 (Version 1)
Quarter: 2021Q4

REPORT INFORMATION
  Report Type: Other
  Country: US (occurrence: US)
  Receive Date: 20211011
  Receipt Date: 20211011
  Transmission Date: 20220303
  Serious: No
  Sender: FDA-Public Use
  Company Number: US-ROCHE-2721871

PATIENT
  Age: 9 Year
  Sex: Female

DRUGS (3)
  1. VEMURAFENIB [Suspect]
     Active Substance: VEMURAFENIB
     Indication: Astrocytoma, low grade
     Route: 065
  2. TRAMETINIB [Suspect]
     Active Substance: TRAMETINIB
     Indication: Astrocytoma, low grade
     Route: 065
  3. DABRAFENIB [Suspect]
     Active Substance: DABRAFENIB
     Indication: Astrocytoma, low grade
     Route: 065

REACTIONS (2)
  - Rash maculo-papular [Unknown]
  - Pruritus [Unknown]
